FAERS Safety Report 17203216 (Version 1)
Quarter: 2019Q4

REPORT INFORMATION
  Report Type: Spontaneous
  Country: IT (occurrence: IT)
  Receive Date: 20191226
  Receipt Date: 20191226
  Transmission Date: 20200122
  Serious: Yes (Hospitalization)
  Sender: FDA-Public Use
  Company Number: IT-PFIZER INC-2019553914

PATIENT
  Age: 84 Year
  Sex: Female

DRUGS (2)
  1. LORAZEPAM. [Suspect]
     Active Substance: LORAZEPAM
     Indication: DRUG ABUSE
     Dosage: 1 DF, TOTAL
     Route: 048
  2. TRITTICO [Suspect]
     Active Substance: TRAZODONE HYDROCHLORIDE
     Indication: DRUG ABUSE
     Dosage: 50 MG, UNK (1 DF, TOTAL)
     Route: 048

REACTIONS (3)
  - Intentional self-injury [Recovering/Resolving]
  - Drug abuse [Recovering/Resolving]
  - Coma [Recovering/Resolving]

NARRATIVE: CASE EVENT DATE: 20191201
